FAERS Safety Report 5277178-3 (Version None)
Quarter: 2007Q1

REPORT INFORMATION
  Report Type: 
  Country: None (occurrence: None)
  Receive Date: 20070322
  Receipt Date: 20070322
  Transmission Date: 20070707
  Serious: Yes (Hospitalization)
  Sender: FDA-Public Use
  Company Number: None

PATIENT
  Age: 24 Year
  Sex: Male
  Weight: 82.5547 kg

DRUGS (2)
  1. HALDOL [Suspect]
     Indication: POISONING
     Dosage: SHOT
     Dates: start: 20070318, end: 20070318
  2. HALDOL [Suspect]
     Indication: SEDATION
     Dosage: SHOT
     Dates: start: 20070318, end: 20070318

REACTIONS (6)
  - DYSKINESIA [None]
  - DYSPNOEA [None]
  - HYPERSOMNIA [None]
  - PYREXIA [None]
  - SWOLLEN TONGUE [None]
  - TRISMUS [None]
